FAERS Safety Report 6446905-1 (Version None)
Quarter: 2009Q4

REPORT INFORMATION
  Report Type: 
  Country: None (occurrence: None)
  Receive Date: 20091119
  Receipt Date: 20091112
  Transmission Date: 20100525
  Serious: Yes (Other)
  Sender: FDA-Public Use
  Company Number: US-TEVA-215194USA

PATIENT
  Sex: Female

DRUGS (2)
  1. CLARAVIS [Suspect]
     Route: 048
     Dates: start: 20081108, end: 20091111
  2. CHORIONIC GONADOTROPIN [Concomitant]
     Indication: WEIGHT DECREASED

REACTIONS (1)
  - UNINTENDED PREGNANCY [None]
